FAERS Safety Report 6240804-6 (Version None)
Quarter: 2009Q2

REPORT INFORMATION
  Report Type: 
  Country: None (occurrence: None)
  Receive Date: 20090623
  Receipt Date: 20090611
  Transmission Date: 20091009
  Serious: Yes (Other)
  Sender: FDA-Public Use
  Company Number: US-ELI_LILLY_AND_COMPANY-US200906002735

PATIENT
  Sex: Female

DRUGS (1)
  1. FORTEO [Suspect]
     Indication: FRACTURE NONUNION
     Dates: start: 20071001

REACTIONS (2)
  - FEMUR FRACTURE [None]
  - OFF LABEL USE [None]
